FAERS Safety Report 5474882-9 (Version None)
Quarter: 2007Q3

REPORT INFORMATION
  Report Type: 
  Country: None (occurrence: None)
  Receive Date: 20070928
  Receipt Date: 20070920
  Transmission Date: 20080115
  Serious: Yes (Other)
  Sender: FDA-Public Use
  Company Number: 2007-00483

PATIENT
  Age: 56 Year
  Sex: Male
  Weight: 82 kg

DRUGS (27)
  1. VELCADE [Suspect]
     Indication: MULTIPLE MYELOMA
     Dosage: 1.30 MG/M2, INTRAVENOUS
     Route: 042
     Dates: start: 20070129, end: 20070312
  2. DIFLUCAN [Concomitant]
  3. OMEPRAL (OMEPRAZOLE) [Concomitant]
  4. LEVOFLOXACIN [Concomitant]
  5. BROTIZOLAM (BROTIZOLAM) [Concomitant]
  6. MAGNESIUM OXIDE (MAGNESIUM OXIDE) [Concomitant]
  7. MONILAC (LACTULOSE) [Concomitant]
  8. BAKTAR (SULFAMETHOXAZOLE, TRIMETHOPRIM) TABLET [Concomitant]
  9. SUCRALFATE [Concomitant]
  10. DEXAMETHASONE 0.5MG TAB [Concomitant]
  11. HYDROCORTONE (HYDROCORTISONE) [Concomitant]
  12. ITRIZOLE (ITRACONAZOLE) SOLUTION (EXCEPT SYRUP) [Concomitant]
  13. ALLOPURINOL [Concomitant]
  14. ZOMETA [Concomitant]
  15. PLATELETS [Concomitant]
  16. VENOGLOBULIN [Concomitant]
  17. LASIX [Concomitant]
  18. NEO-MINOPHAGEN C (GLYCYRRHIZIC ACID, AMMONIUM SALT) [Concomitant]
  19. POLARAMINE [Concomitant]
  20. GRAN [Concomitant]
  21. RED BLOOD CELLS [Concomitant]
  22. NAUZELIN (DOMPERIDONE) [Concomitant]
  23. PRIMPERAN TAB [Concomitant]
  24. VALTREX [Concomitant]
  25. METHYCOBAL (MECOBALAMIN) [Concomitant]
  26. CLONAZEPAM [Concomitant]
  27. LORAZEPAM [Concomitant]

REACTIONS (11)
  - ANAEMIA [None]
  - CONSTIPATION [None]
  - HYPOAESTHESIA [None]
  - NEUROGENIC BLADDER [None]
  - NEUROPATHY PERIPHERAL [None]
  - PLATELET COUNT DECREASED [None]
  - PNEUMONIA [None]
  - TUMOUR LYSIS SYNDROME [None]
  - URINARY RETENTION [None]
  - VOMITING [None]
  - WHITE BLOOD CELL COUNT DECREASED [None]
